FAERS Safety Report 6317746-0 (Version None)
Quarter: 2009Q3

REPORT INFORMATION
  Report Type: 
  Country: None (occurrence: None)
  Receive Date: 20090821
  Receipt Date: 20090820
  Transmission Date: 20100115
  Serious: No
  Sender: FDA-Public Use
  Company Number: AT-EISAI INC.-E2020-05026-CLI-AT

PATIENT
  Sex: Male

DRUGS (1)
  1. PLACEBO [Suspect]
     Dosage: PLACEBO
     Route: 048

REACTIONS (1)
  - ADENOMA BENIGN [None]
